FAERS Safety Report 17505879 (Version 3)
Quarter: 2020Q1

REPORT INFORMATION
  Report Type: Report from Study
  Country: None (occurrence: ES)
  Receive Date: 20200306
  Receipt Date: 20200319
  Transmission Date: 20200409
  Serious: Yes (Other)
  Sender: FDA-Public Use
  Company Number: ES-ABBVIE-20K-144-3303803-00

PATIENT
  Age: 72 Year
  Sex: Male
  Weight: 100 kg

DRUGS (1)
  1. DUODOPA [Suspect]
     Active Substance: CARBIDOPA\LEVODOPA
     Indication: PARKINSON^S DISEASE
     Route: 050
     Dates: start: 20171109

REACTIONS (3)
  - Embedded device [Not Recovered/Not Resolved]
  - Device difficult to use [Unknown]
  - Device physical property issue [Unknown]

NARRATIVE: CASE EVENT DATE: 2020
